FAERS Safety Report 7800788-3 (Version None)
Quarter: 2011Q4

REPORT INFORMATION
  Report Type: 
  Country: None (occurrence: None)
  Receive Date: 20111006
  Receipt Date: 20110915
  Transmission Date: 20120403
  Serious: No
  Sender: FDA-Public Use
  Company Number: US-B.I. PHARMACEUTICALS,INC./RIDGEFIELD-2011-BP-22347BP

PATIENT
  Sex: Male

DRUGS (9)
  1. HYDRALAZINE HCL [Concomitant]
     Indication: HYPERTENSION
     Dates: start: 20100101
  2. LISINOPRIL [Concomitant]
     Indication: HYPERTENSION
     Dates: start: 20080101
  3. FUROSEMIDE [Concomitant]
     Indication: OEDEMA
     Dates: start: 20100101
  4. DIGOXIN [Concomitant]
     Indication: ATRIAL FIBRILLATION
     Dosage: 0.125 MG
     Route: 048
     Dates: start: 20100101
  5. ISOSORBIDE DINITRATE [Concomitant]
     Indication: ANGINA PECTORIS
     Dates: start: 20100101
  6. HUMULIN 70/30 [Concomitant]
     Indication: TYPE 2 DIABETES MELLITUS
     Route: 048
     Dates: start: 20110701
  7. PRADAXA [Suspect]
     Indication: ATRIAL FIBRILLATION
     Dosage: 300 MG
     Route: 048
     Dates: start: 20110801, end: 20110914
  8. CARVEDILOL [Concomitant]
     Indication: HYPERTENSION
     Dates: start: 20100101
  9. SPIRONOLACTONE [Concomitant]
     Indication: OEDEMA
     Dates: start: 20100101

REACTIONS (1)
  - ERECTION INCREASED [None]
